FAERS Safety Report 5609823-4 (Version None)
Quarter: 2008Q1

REPORT INFORMATION
  Report Type: 
  Country: None (occurrence: None)
  Receive Date: 20080131
  Receipt Date: 20071129
  Transmission Date: 20080703
  Serious: No
  Sender: FDA-Public Use
  Company Number: US-BAYER-200713987BCC

PATIENT
  Age: 57 Year
  Sex: Female
  Weight: 71 kg

DRUGS (3)
  1. ALEVE [Suspect]
     Indication: ARTHRALGIA
     Dosage: AS USED: 440 MG  UNIT DOSE: 220 MG
     Route: 048
     Dates: start: 20071128
  2. NEXIUM [Concomitant]
  3. PRANDIN [Concomitant]

REACTIONS (1)
  - STOMACH DISCOMFORT [None]
